FAERS Safety Report 8116278-7 (Version None)
Quarter: 2012Q1

REPORT INFORMATION
  Report Type: 
  Country: None (occurrence: None)
  Receive Date: 20120206
  Receipt Date: 20120125
  Transmission Date: 20120608
  Serious: Yes (Hospitalization, Other)
  Sender: FDA-Public Use
  Company Number: US-JNJFOC-20120111343

PATIENT
  Sex: Female
  Weight: 36.3 kg

DRUGS (3)
  1. REMICADE [Suspect]
     Indication: CROHN'S DISEASE
     Route: 042
     Dates: start: 20110719
  2. REMICADE [Suspect]
     Route: 042
     Dates: start: 20101027
  3. REMICADE [Suspect]
     Route: 042
     Dates: start: 20111025

REACTIONS (1)
  - CROHN'S DISEASE [None]
